FAERS Safety Report 5248366-7 (Version None)
Quarter: 2007Q1

REPORT INFORMATION
  Report Type: 
  Country: None (occurrence: None)
  Receive Date: 20070227
  Receipt Date: 20070212
  Transmission Date: 20070707
  Serious: Yes (Hospitalization, Other)
  Sender: FDA-Public Use
  Company Number: US-SHR-US-2007-005057

PATIENT
  Age: 52 Year
  Sex: Female

DRUGS (7)
  1. BETASERON [Suspect]
     Indication: RELAPSING-REMITTING MULTIPLE SCLEROSIS
     Dosage: 8 MIU, EVERY 2D
     Route: 058
     Dates: start: 20040415, end: 20060102
  2. BETASERON [Suspect]
     Dosage: 8 MIU, EVERY 2D
     Route: 058
     Dates: start: 20060122
  3. HYDROCHLOROTHIAZIDE [Concomitant]
     Dosage: 50 MG, 1X/DAY
  4. LANTUS [Concomitant]
     Dosage: 110 UNK, 1X/DAY
  5. ACTOS                                   /USA/ [Concomitant]
     Dosage: 30 MG, 1X/DAY
  6. OXYCONTIN [Concomitant]
     Indication: PAIN
  7. ELAVIL [Concomitant]
     Dosage: 100 MG, 1X/DAY AT NIGHT

REACTIONS (4)
  - ASTHENIA [None]
  - BLOOD POTASSIUM DECREASED [None]
  - PAIN [None]
  - RASH [None]
